FAERS Safety Report 11754696 (Version 4)
Quarter: 2015Q4

REPORT INFORMATION
  Report Type: Spontaneous
  Country: CH (occurrence: CH)
  Receive Date: 20151119
  Receipt Date: 20151218
  Transmission Date: 20160304
  Serious: Yes (Death, Hospitalization)
  Sender: FDA-Public Use
  Company Number: CH-LPDUSPRD-20150903

PATIENT
  Age: 56 Year
  Sex: Female

DRUGS (28)
  1. HALDOL [Concomitant]
     Active Substance: HALOPERIDOL
     Dosage: DOSE NOT PROVIDED
     Route: 065
  2. VENTOLIN [Concomitant]
     Active Substance: ALBUTEROL SULFATE
     Dosage: 100 MCG
     Route: 065
  3. TRANSIPEG [Concomitant]
     Active Substance: POLYETHYLENE GLYCOL 3350
     Dosage: 1 IN 1 D
     Route: 065
  4. LAXOBERON [Concomitant]
     Active Substance: SODIUM PICOSULFATE
     Dosage: 30 ML
     Route: 065
  5. MORPHINI HCL [Concomitant]
     Dosage: DOSE NOT PROVIDED
     Route: 065
  6. POTASSIUM CHLORIDE. [Concomitant]
     Active Substance: POTASSIUM CHLORIDE
     Dosage: 2 IN 1 D
     Route: 065
  7. PANTOZOL [Concomitant]
     Active Substance: PANTOPRAZOLE SODIUM
     Dosage: 80 MG (40 MG, 2 IN 1 D)
     Route: 065
  8. VALIUM [Concomitant]
     Active Substance: DIAZEPAM
     Dosage: DOSE NOT PROVIDED
     Route: 065
  9. NOVALGIN [Concomitant]
     Active Substance: METAMIZOLE SODIUM
     Dosage: DOSE NOT PROVIDED
     Route: 065
  10. IMPORTAL [Concomitant]
     Active Substance: LACTITOL
     Dosage: DOSE NOT PROVIDED
     Route: 065
  11. MIRTAZAP [Concomitant]
     Dosage: 15 MG, 1 IN 1 D
     Route: 065
  12. LASIX [Concomitant]
     Active Substance: FUROSEMIDE
     Dosage: 80 MG (40 MG, 2 IN 1 D)
     Route: 065
  13. CONCOR [Concomitant]
     Active Substance: BISOPROLOL FUMARATE
     Dosage: 2.5 MG (2.5 MG, 1 IN 1 D)
     Route: 065
     Dates: start: 20150804
  14. BECOZYM FORTE [Concomitant]
     Dosage: 3 IN 1 D
     Route: 065
  15. BEPANTHEN [Concomitant]
     Active Substance: DEXPANTHENOL
     Dosage: DOSE NOT PROVIDED
     Route: 065
  16. EXCIPIAL U [Concomitant]
     Active Substance: UREA
     Dosage: DOSE NOT PROVIDED
     Route: 065
  17. TAZOBAC [Concomitant]
     Active Substance: PIPERACILLIN SODIUM\TAZOBACTAM SODIUM
     Dosage: DOSE NOT PROVIDED
     Route: 065
     Dates: start: 20150611, end: 20150617
  18. ALDACTONE [Concomitant]
     Active Substance: SPIRONOLACTONE
     Dosage: 100 MG, 1 IN 1 D
     Route: 065
  19. TEMESTA [Concomitant]
     Active Substance: LORAZEPAM
     Dosage: 1 MG
     Route: 065
  20. SERETIDE [Concomitant]
     Active Substance: FLUTICASONE FUROATE\SALMETEROL XINAFOATE
     Dosage: IF REQUIRED;2 IN 1 DAY
     Route: 065
  21. FERINJECT [Suspect]
     Active Substance: FERRIC CARBOXYMALTOSE
     Dosage: 500 MG, 1 IN 1 D
     Route: 041
     Dates: start: 20150827, end: 20150827
  22. CAVILON DBC [Concomitant]
     Dosage: 92 GM
     Route: 065
  23. MUCOFLUID [Concomitant]
     Dosage: 600 MG
     Route: 065
  24. IPRAMOL [Concomitant]
     Active Substance: ALBUTEROL SULFATE\IPRATROPIUM BROMIDE
     Dosage: DOSE NOT PROVIDED
     Route: 055
  25. FLAGYL [Concomitant]
     Active Substance: METRONIDAZOLE\METRONIDAZOLE HYDROCHLORIDE
     Dosage: DOSE NOT PROVIDED
     Route: 065
  26. OCTENISEPT [Concomitant]
     Active Substance: OCTENIDINE\PHENOXYETHANOL
     Dosage: DOSE NOT PROVIDED
     Route: 065
  27. TOREM [Concomitant]
     Active Substance: TORSEMIDE
     Dosage: 10 MG, 2 IN AM, 1 IN PM
     Route: 065
  28. PASPERTIN [Concomitant]
     Active Substance: METOCLOPRAMIDE HYDROCHLORIDE
     Dosage: DOSE NOT PROVIDED
     Route: 065

REACTIONS (16)
  - Multi-organ failure [Fatal]
  - Immobile [Unknown]
  - Tachycardia [Unknown]
  - General physical health deterioration [Unknown]
  - Anxiety [Unknown]
  - Pleural effusion [Unknown]
  - Delirium [Unknown]
  - Localised oedema [Unknown]
  - Skin discolouration [Unknown]
  - Dyspnoea [Unknown]
  - Confusional state [Unknown]
  - Renal impairment [Unknown]
  - Sepsis [Fatal]
  - Coma [Unknown]
  - Extravasation [Unknown]
  - Anuria [Unknown]

NARRATIVE: CASE EVENT DATE: 20150827
